FAERS Safety Report 5035330-6 (Version None)
Quarter: 2006Q2

REPORT INFORMATION
  Report Type: 
  Country: None (occurrence: None)
  Receive Date: 20060523
  Receipt Date: 20050711
  Transmission Date: 20061013
  Serious: Yes (Other)
  Sender: FDA-Public Use
  Company Number: 0507-302

PATIENT
  Age: 75 Year
  Sex: Male
  Weight: 117.9352 kg

DRUGS (2)
  1. DUONEB [Suspect]
     Dosage: DUONEB
     Dates: start: 20050613, end: 20050701
  2. ADVAIR DISKUS 100/50 [Concomitant]

REACTIONS (1)
  - DYSPNOEA [None]
